FAERS Safety Report 7387427-3 (Version None)
Quarter: 2011Q1

REPORT INFORMATION
  Report Type: 
  Country: None (occurrence: None)
  Receive Date: 20110331
  Receipt Date: 20110318
  Transmission Date: 20110831
  Serious: Yes (Other)
  Sender: FDA-Public Use
  Company Number: FR-CELGENEUS-056-21880-11032225

PATIENT
  Sex: Female

DRUGS (4)
  1. ASPIRIN [Suspect]
     Dosage: 100 MILLIGRAM
     Route: 048
     Dates: start: 20101008
  2. REVLIMID [Suspect]
     Dosage: 25 MILLIGRAM
     Route: 048
     Dates: start: 20101008, end: 20110118
  3. ZOMETA [Suspect]
     Dosage: 4 MILLIGRAM
     Route: 051
     Dates: start: 20101008
  4. DEXAMETHASONE [Suspect]
     Dosage: 10 MILLIGRAM
     Route: 048
     Dates: start: 20101008

REACTIONS (1)
  - TOXIC SKIN ERUPTION [None]
